FAERS Safety Report 6312101-1 (Version None)
Quarter: 2009Q3

REPORT INFORMATION
  Report Type: 
  Country: None (occurrence: None)
  Receive Date: 20090813
  Receipt Date: 20090813
  Transmission Date: 20100115
  Serious: Yes (Disabling, Other)
  Sender: FDA-Public Use
  Company Number: None

PATIENT
  Age: 46 Year
  Sex: Male
  Weight: 84.8226 kg

DRUGS (1)
  1. ZICAM COLD REMEDY GEL NASAL GEL - 15ML PUMP ZICAM, LLC AND MATRIXX INI [Suspect]
     Indication: NASAL CONGESTION
     Dosage: ONE PUMP PER NOSTRIL ONCE NASAL
     Route: 045
     Dates: start: 20090505, end: 20090505

REACTIONS (5)
  - AGEUSIA [None]
  - ANOSMIA [None]
  - BURNING SENSATION [None]
  - DISORIENTATION [None]
  - NASAL CONGESTION [None]
